FAERS Safety Report 11252615 (Version 1)
Quarter: 2015Q3

REPORT INFORMATION
  Report Type: Spontaneous
  Country: US (occurrence: None)
  Receive Date: 20150707
  Receipt Date: 20150707
  Transmission Date: 20151125
  Serious: Yes (Hospitalization)
  Sender: FDA-Public Use
  Company Number: 15-06-019

PATIENT
  Age: 86 Year
  Sex: Male
  Weight: 79.38 kg

DRUGS (4)
  1. PRAVASTATIN [Concomitant]
     Active Substance: PRAVASTATIN\PRAVASTATIN SODIUM
  2. GLIPIZIDE. [Concomitant]
     Active Substance: GLIPIZIDE
  3. NIACIN. [Concomitant]
     Active Substance: NIACIN
  4. METFORMIN HYDROCHLORIDE TABLETS USP 1000 MG [Suspect]
     Active Substance: METFORMIN HYDROCHLORIDE
     Indication: TYPE 2 DIABETES MELLITUS
     Route: 048
     Dates: start: 2013, end: 201504

REACTIONS (4)
  - Renal failure [None]
  - Lactic acidosis [None]
  - Diarrhoea [None]
  - Overdose [None]

NARRATIVE: CASE EVENT DATE: 201406
